FAERS Safety Report 4374940-6 (Version None)
Quarter: 2004Q2

REPORT INFORMATION
  Report Type: 
  Country: None (occurrence: None)
  Receive Date: 20040603
  Receipt Date: 20031120
  Transmission Date: 20050107
  Serious: Yes (Other)
  Sender: FDA-Public Use
  Company Number: 200320042US

PATIENT
  Sex: Male

DRUGS (2)
  1. LOVENOX [Suspect]
     Dosage: 30 MG Q12H
  2. LOVENOX [Suspect]

REACTIONS (5)
  - CHEST PAIN [None]
  - HAEMOPTYSIS [None]
  - PNEUMONIA [None]
  - PULMONARY EMBOLISM [None]
  - WOUND SECRETION [None]
